FAERS Safety Report 9298332 (Version 1)
Quarter: 2013Q1

REPORT INFORMATION
  Report Type: Spontaneous
  Country: US (occurrence: None)
  Receive Date: 20121227
  Receipt Date: 20121227
  Transmission Date: 20140127
  Serious: No
  Sender: FDA-Public Use
  Company Number: PHEH2012US017912

PATIENT
  Age: 8 Year
  Sex: Male

DRUGS (6)
  1. AFINITOR [Suspect]
     Indication: TUBEROUS SCLEROSIS
     Route: 048
  2. RAPAMUNE (SIROLIMUS) [Concomitant]
  3. KEPPRA (LEVETIRACETAM) [Concomitant]
  4. IMITREX (SUMATRIPTAN) [Concomitant]
  5. DIASTAT (DIAZEPAM) [Concomitant]
  6. TRILEPTAL (OXCARBAZEPINE) [Concomitant]

REACTIONS (5)
  - Headache [None]
  - Nausea [None]
  - Vomiting [None]
  - Migraine [None]
  - Sinus disorder [None]
